FAERS Safety Report 7018130-7 (Version None)
Quarter: 2010Q3

REPORT INFORMATION
  Report Type: 
  Country: None (occurrence: None)
  Receive Date: 20100928
  Receipt Date: 20100917
  Transmission Date: 20110219
  Serious: Yes (Other)
  Sender: FDA-Public Use
  Company Number: JP-ROCHE-725392

PATIENT
  Sex: Male
  Weight: 53 kg

DRUGS (3)
  1. XELODA [Suspect]
     Indication: RECTAL CANCER RECURRENT
     Route: 048
     Dates: start: 20100803, end: 20100817
  2. AVASTIN [Suspect]
     Indication: RECTAL CANCER RECURRENT
     Route: 041
     Dates: start: 20100803, end: 20100803
  3. ELPLAT [Concomitant]
     Route: 041
     Dates: start: 20100803, end: 20100803

REACTIONS (3)
  - CELLULITIS [None]
  - ENTEROCUTANEOUS FISTULA [None]
  - SMALL INTESTINAL PERFORATION [None]
